FAERS Safety Report 9100904 (Version 1)
Quarter: 2013Q1

REPORT INFORMATION
  Report Type: Spontaneous
  Country: US (occurrence: None)
  Receive Date: 20130220
  Receipt Date: 20130220
  Transmission Date: 20140127
  Serious: Yes (Other)
  Sender: FDA-Public Use
  Company Number: None

PATIENT
  Sex: Female
  Weight: 56.7 kg

DRUGS (2)
  1. SIMPLY SALINE PURIFIED WATER AND .9% SODIUM ARM AND HAMMER [Suspect]
     Indication: NASAL CONGESTION
     Dosage: 1 FULL MIST
     Route: 045
  2. SIMPLY SALINE PURIFIED WATER AND .9% SODIUM ARM AND HAMMER [Suspect]
     Indication: NASAL CONGESTION
     Dosage: 1 FULL MIST
     Route: 045

REACTIONS (3)
  - Nasal congestion [None]
  - Condition aggravated [None]
  - Instillation site pain [None]
